FAERS Safety Report 9164014 (Version 1)
Quarter: 2013Q1

REPORT INFORMATION
  Report Type: Spontaneous
  Country: US (occurrence: US)
  Receive Date: 20130314
  Receipt Date: 20130314
  Transmission Date: 20140127
  Serious: No
  Sender: FDA-Public Use
  Company Number: US-B.I. PHARMACEUTICALS,INC./RIDGEFIELD-2013-BI-06498BP

PATIENT
  Age: 84 Year
  Sex: Male

DRUGS (2)
  1. TRADJENTA [Suspect]
     Indication: BLOOD GLUCOSE INCREASED
     Dosage: 5 MG
     Route: 048
  2. PREDNISONE [Concomitant]

REACTIONS (1)
  - Fatigue [Unknown]
